FAERS Safety Report 16385425 (Version 2)
Quarter: 2019Q2

REPORT INFORMATION
  Report Type: Spontaneous
  Country: IT (occurrence: IT)
  Receive Date: 20190603
  Receipt Date: 20190606
  Transmission Date: 20190711
  Serious: Yes (Other)
  Sender: FDA-Public Use
  Company Number: IT-ELI_LILLY_AND_COMPANY-IT201905014979

PATIENT
  Age: 63 Year
  Sex: Female
  Weight: 64 kg

DRUGS (2)
  1. GEMCITABINE HYDROCHLORIDE. [Suspect]
     Active Substance: GEMCITABINE HYDROCHLORIDE
     Indication: BREAST CANCER METASTATIC
     Dosage: 1252 MG, CYCLICAL
     Route: 042
     Dates: start: 20190509, end: 20190509
  2. CARBOPLATIN. [Suspect]
     Active Substance: CARBOPLATIN
     Indication: BREAST CANCER METASTATIC
     Dosage: 213 MG, CYCLICAL
     Route: 042
     Dates: start: 20190509

REACTIONS (4)
  - Chromaturia [Unknown]
  - Off label use [Unknown]
  - Transaminases increased [Unknown]
  - Jaundice [Unknown]

NARRATIVE: CASE EVENT DATE: 20190521
